FAERS Safety Report 8099952-0 (Version None)
Quarter: 2012Q1

REPORT INFORMATION
  Report Type: 
  Country: None (occurrence: None)
  Receive Date: 20120129
  Receipt Date: 20111125
  Transmission Date: 20120608
  Serious: No
  Sender: FDA-Public Use
  Company Number: US-ABBOTT-11P-163-0878206-00

PATIENT
  Age: 29 Year
  Sex: Female

DRUGS (4)
  1. PREVACID [Concomitant]
     Indication: GASTRIC PH DECREASED
  2. ORTHO EVRA [Concomitant]
     Indication: CONTRACEPTION
     Route: 061
  3. ZYRTEC [Concomitant]
     Indication: SEASONAL ALLERGY
     Dosage: AT BEDTIME
  4. HUMIRA [Suspect]
     Indication: PSORIATIC ARTHROPATHY

REACTIONS (5)
  - ERYTHEMA [None]
  - INJECTION SITE ERYTHEMA [None]
  - PRURITUS [None]
  - NODULE [None]
  - INJECTION SITE PRURITUS [None]
